FAERS Safety Report 25948026 (Version 2)
Quarter: 2025Q4

REPORT INFORMATION
  Report Type: Spontaneous
  Country: US (occurrence: US)
  Receive Date: 20251022
  Receipt Date: 20251029
  Transmission Date: 20260118
  Serious: Yes (Other)
  Sender: INTERCEPT PHARMACEUTICALS
  Company Number: US-INTERCEPTP-2025-AER-06678

PATIENT
  Sex: Female

DRUGS (3)
  1. OCALIVA [Suspect]
     Active Substance: OBETICHOLIC ACID
     Indication: Primary biliary cholangitis
     Dosage: 5 MILLIGRAM, QD
     Dates: start: 201612, end: 201702
  2. OCALIVA [Suspect]
     Active Substance: OBETICHOLIC ACID
     Indication: Product use in unapproved indication
     Dosage: 5 MILLIGRAM, QOD
     Dates: start: 201702
  3. OCALIVA [Suspect]
     Active Substance: OBETICHOLIC ACID
     Indication: Product use in unapproved indication
     Dosage: 5 MILLIGRAM, QD
     Dates: start: 201808

REACTIONS (4)
  - Pericarditis [Unknown]
  - Post procedural infection [Unknown]
  - Hepatic enzyme increased [Recovered/Resolved]
  - Blood alkaline phosphatase increased [Recovered/Resolved]
